FAERS Safety Report 4546697-7 (Version None)
Quarter: 2005Q1

REPORT INFORMATION
  Report Type: 
  Country: None (occurrence: None)
  Receive Date: 20050105
  Receipt Date: 20041225
  Transmission Date: 20050727
  Serious: Yes (Hospitalization)
  Sender: FDA-Public Use
  Company Number: 2004120258

PATIENT
  Sex: Male

DRUGS (1)
  1. INFANT'S PEDIACARE DECONGESTANT AND COUGH DROPS (PSEUDOEPHDRINE, DEXTR [Suspect]
     Indication: NASOPHARYNGITIS
     Dosage: 2 DROPPERFULS EVERY 3  1/2 TO 4 HOURS, ORAL
     Route: 048
     Dates: start: 20030101

REACTIONS (2)
  - DRUG INEFFECTIVE [None]
  - PNEUMONIA [None]
